FAERS Safety Report 4486561-5 (Version None)
Quarter: 2004Q4

REPORT INFORMATION
  Report Type: 
  Country: None (occurrence: None)
  Receive Date: 20041027
  Receipt Date: 20041018
  Transmission Date: 20050328
  Serious: Yes (Hospitalization)
  Sender: FDA-Public Use
  Company Number: US-JNJFOC-20041005571

PATIENT
  Sex: Female

DRUGS (7)
  1. DURAGESIC [Suspect]
     Dosage: ONE 100 UG/HR PATCH PLUS ONE 50 UG/HR PATCH
     Route: 062
     Dates: start: 20040801
  2. ARMOR-THYROID [Concomitant]
     Route: 049
  3. ERAN-DIGESTIVE [Concomitant]
     Dosage: THREE 15 MG TABLETS
     Route: 049
  4. TRAZODONE HCL [Concomitant]
     Route: 049
  5. PAXIL [Concomitant]
     Route: 049
  6. LACTULOSE [Concomitant]
     Route: 049
  7. MAGNESIUM CITRATE [Concomitant]
     Route: 049

REACTIONS (1)
  - INTESTINAL OBSTRUCTION [None]
